FAERS Safety Report 7630725-6 (Version None)
Quarter: 2011Q3

REPORT INFORMATION
  Report Type: 
  Country: None (occurrence: None)
  Receive Date: 20110722
  Receipt Date: 20110718
  Transmission Date: 20111222
  Serious: Yes (Life-Threatening)
  Sender: FDA-Public Use
  Company Number: DE-MERCK-1107DEU00084

PATIENT
  Age: 71 Year
  Sex: Male

DRUGS (9)
  1. ZOCOR [Suspect]
     Indication: CORONARY ARTERY DISEASE
     Route: 048
     Dates: end: 20101213
  2. AMLODIPINE [Concomitant]
     Route: 065
  3. RAMIPRIL [Concomitant]
     Route: 065
  4. CLOPIDOGREL [Concomitant]
     Indication: CORONARY ARTERY DISEASE
     Route: 048
  5. BISOPROLOL [Concomitant]
     Route: 065
  6. ASPIRIN [Concomitant]
     Indication: CORONARY ARTERY DISEASE
     Route: 048
  7. TAMSULOSIN HYDROCHLORIDE [Concomitant]
     Route: 065
  8. CLARITHROMYCIN [Concomitant]
     Indication: PNEUMONIA CHLAMYDIAL
     Route: 065
     Dates: end: 20101213
  9. TORSEMIDE [Concomitant]
     Route: 065

REACTIONS (2)
  - PARAPARESIS [None]
  - RHABDOMYOLYSIS [None]
